FAERS Safety Report 17343575 (Version 6)
Quarter: 2025Q3

REPORT INFORMATION
  Report Type: Spontaneous
  Country: EU (occurrence: EU)
  Receive Date: 20200129
  Receipt Date: 20250729
  Transmission Date: 20251021
  Serious: Yes (Hospitalization, Other)
  Sender: MYLAN
  Company Number: EU-MEDINFARP-2019-11-2461

PATIENT
  Age: 89 Year
  Sex: Female

DRUGS (4)
  1. AMIODARONE [Suspect]
     Active Substance: AMIODARONE
     Indication: Atrial fibrillation
  2. AMIODARONE [Suspect]
     Active Substance: AMIODARONE
     Route: 065
  3. AMIODARONE [Suspect]
     Active Substance: AMIODARONE
     Route: 065
  4. AMIODARONE [Suspect]
     Active Substance: AMIODARONE

REACTIONS (10)
  - Lung opacity [Recovering/Resolving]
  - Rales [Recovering/Resolving]
  - Eosinophil count increased [Unknown]
  - Cough [Recovering/Resolving]
  - Fibrosis [Unknown]
  - Dyspnoea [Recovering/Resolving]
  - Pulmonary toxicity [Recovering/Resolving]
  - Toxicity to various agents [Recovering/Resolving]
  - Drug abuse [Unknown]
  - Overdose [Unknown]
